FAERS Safety Report 9851176 (Version 1)
Quarter: 2014Q1

REPORT INFORMATION
  Report Type: Spontaneous
  Country: US (occurrence: US)
  Receive Date: 20140128
  Receipt Date: 20140128
  Transmission Date: 20141002
  Serious: Yes (Hospitalization)
  Sender: FDA-Public Use
  Company Number: US-SANOFI-AVENTIS-2013SA082422

PATIENT
  Age: 77 Year
  Sex: Male

DRUGS (19)
  1. LASIX [Suspect]
     Route: 065
  2. HYDROCHLOROTHIAZIDE/LISINOPRIL [Suspect]
     Route: 065
  3. SAXAGLIPTIN HYDROCHLORIDE [Suspect]
     Indication: TYPE 2 DIABETES MELLITUS
     Route: 065
     Dates: start: 20110815
  4. GLYBURIDE [Suspect]
     Indication: TYPE 2 DIABETES MELLITUS
     Route: 065
     Dates: end: 20111104
  5. GLYBURIDE [Suspect]
     Indication: TYPE 2 DIABETES MELLITUS
     Route: 065
     Dates: start: 20111104, end: 20120228
  6. GLYBURIDE [Suspect]
     Indication: TYPE 2 DIABETES MELLITUS
     Route: 065
     Dates: start: 20120228
  7. PLACEBO [Suspect]
     Indication: TYPE 2 DIABETES MELLITUS
     Route: 065
     Dates: start: 20110815
  8. PLATELET AGGREGATION INHIBITORS [Concomitant]
  9. BETA BLOCKING AGENTS [Concomitant]
  10. HMG COA REDUCTASE INHIBITORS [Concomitant]
  11. ACE INHIBITOR NOS [Concomitant]
  12. ALL OTHER THERAPEUTIC PRODUCTS [Concomitant]
  13. DIURETICS [Concomitant]
  14. ORGANIC NITRATES [Concomitant]
  15. ALL OTHER THERAPEUTIC PRODUCTS [Concomitant]
  16. ASPIRIN [Concomitant]
  17. TRIMETAZIDINE [Concomitant]
  18. RANOLAZINE HYDROCHLORIDE [Concomitant]
  19. CORONARY VASODILATORS [Concomitant]

REACTIONS (1)
  - Dehydration [Recovered/Resolved]
